FAERS Safety Report 10103125 (Version 1)
Quarter: 2014Q2

REPORT INFORMATION
  Report Type: Spontaneous
  Country: US (occurrence: US)
  Receive Date: 20140424
  Receipt Date: 20140424
  Transmission Date: 20141212
  Serious: No
  Sender: FDA-Public Use
  Company Number: US-BRISTOL-MYERS SQUIBB COMPANY-20105235

PATIENT
  Sex: Female

DRUGS (1)
  1. ELIQUIS [Suspect]
     Indication: ATRIAL FLUTTER
     Dosage: TABS

REACTIONS (5)
  - Increased viscosity of bronchial secretion [Unknown]
  - Dysphagia [Unknown]
  - Choking sensation [Unknown]
  - Pruritus generalised [Unknown]
  - Oedema [Unknown]
